FAERS Safety Report 8990600 (Version 1)
Quarter: 2012Q4

REPORT INFORMATION
  Report Type: Report from Study
  Country: PL (occurrence: PL)
  Receive Date: 20121228
  Receipt Date: 20121228
  Transmission Date: 20130627
  Serious: Yes (Hospitalization)
  Sender: FDA-Public Use
  Company Number: PL-BAXTER-2012BAX028799

PATIENT
  Age: 67 Year
  Sex: Female
  Weight: 90 kg

DRUGS (3)
  1. ENDOXAN [Suspect]
     Indication: B-CELL CHRONIC LYMPHOCYTIC LEUKEMIA
     Route: 042
     Dates: start: 20100428
  2. RITUXIMAB [Suspect]
     Indication: B-CELL CHRONIC LYMPHOCYTIC LEUKEMIA
     Route: 042
     Dates: start: 20100427
  3. CLADRIBINE [Suspect]
     Indication: B-CELL CHRONIC LYMPHOCYTIC LEUKEMIA
     Route: 042
     Dates: start: 20100428

REACTIONS (1)
  - Renal failure [Recovered/Resolved with Sequelae]
